FAERS Safety Report 5367592-X (Version None)
Quarter: 2007Q2

REPORT INFORMATION
  Report Type: 
  Country: None (occurrence: None)
  Receive Date: 20070622
  Receipt Date: 20061222
  Transmission Date: 20071010
  Serious: No
  Sender: FDA-Public Use
  Company Number: US-ASTRAZENECA-2006UW28473

PATIENT
  Age: 6 Year
  Sex: Male

DRUGS (3)
  1. PULMICORT RESPULES [Suspect]
     Indication: CROUP INFECTIOUS
     Route: 055
  2. ORAPRED [Concomitant]
  3. ZANTAC [Concomitant]

REACTIONS (2)
  - EYE DISORDER [None]
  - HEADACHE [None]
